FAERS Safety Report 7809303 (Version 6)
Quarter: 2013Q3

REPORT INFORMATION
  Report Type: Report from Study
  Country: DE (occurrence: DE)
  Receive Date: 20110211
  Receipt Date: 20130716
  Transmission Date: 20140515
  Serious: Yes (Hospitalization)
  Sender: FDA-Public Use
  Company Number: DE-ROCHE-759082

PATIENT
  Age: 62 Year
  Sex: Male
  Weight: 75 kg

DRUGS (10)
  1. PEG-INTERFERON ALFA 2A [Suspect]
     Indication: CHRONIC HEPATITIS C
     Route: 058
     Dates: start: 20100609
  2. RIBAVIRIN [Suspect]
     Indication: CHRONIC HEPATITIS C
     Route: 048
     Dates: start: 20100609
  3. PROGRAF [Concomitant]
     Dosage: IN THE MORNING AND IN THE EVENING
     Route: 048
  4. URSOFALK [Concomitant]
     Dosage: IN THE MORNING AND IN THE EVENING
     Route: 048
  5. TAMSULOSIN [Concomitant]
     Dosage: IN THE MORNING
     Route: 048
  6. PANTOPRAZOLE [Concomitant]
     Dosage: IN THE MORNING
     Route: 048
  7. BELOC-ZOK MITE [Concomitant]
     Dosage: 1 DF IN THE MORNING, 0.5 DF IN THE EVENING
     Route: 048
  8. JANUVIA [Concomitant]
     Dosage: IN THE MORNING
     Route: 048
  9. ARANESP [Concomitant]
     Route: 058
  10. LAXOBERAL [Concomitant]
     Dosage: ONCE PER DAY IF REQUIRED
     Route: 048

REACTIONS (2)
  - Haemolysis [Recovering/Resolving]
  - Anaemia [Unknown]
